FAERS Safety Report 4545455-7 (Version None)
Quarter: 2005Q1

REPORT INFORMATION
  Report Type: 
  Country: None (occurrence: None)
  Receive Date: 20050103
  Receipt Date: 20041110
  Transmission Date: 20050727
  Serious: Yes (Hospitalization, Other)
  Sender: FDA-Public Use
  Company Number: 2004238113US

PATIENT
  Age: 76 Year
  Sex: Female
  Weight: 87.07 kg

DRUGS (2)
  1. CELEBREX [Suspect]
     Indication: OSTEOPOROSIS
     Dosage: 200 MG (QD), ORAL
     Route: 048
     Dates: end: 20040801
  2. VITAMINS (VITAMINS) [Concomitant]

REACTIONS (22)
  - ABDOMINAL PAIN UPPER [None]
  - CONDITION AGGRAVATED [None]
  - DEHYDRATION [None]
  - DIZZINESS [None]
  - DRY EYE [None]
  - DRY MOUTH [None]
  - DRY THROAT [None]
  - DYSPNOEA [None]
  - ILL-DEFINED DISORDER [None]
  - IMPAIRED WORK ABILITY [None]
  - INSOMNIA [None]
  - JOINT RANGE OF MOTION DECREASED [None]
  - JOINT SWELLING [None]
  - MALAISE [None]
  - OEDEMA PERIPHERAL [None]
  - PAIN [None]
  - RENAL PAIN [None]
  - SWELLING [None]
  - TONGUE DRY [None]
  - TREATMENT NONCOMPLIANCE [None]
  - VISUAL ACUITY REDUCED [None]
  - WEIGHT DECREASED [None]
